FAERS Safety Report 23520980 (Version 3)
Quarter: 2024Q2

REPORT INFORMATION
  Report Type: Spontaneous
  Country: JP (occurrence: JP)
  Receive Date: 20240214
  Receipt Date: 20240419
  Transmission Date: 20240716
  Serious: Yes (Death, Hospitalization, Disabling, Other)
  Sender: FDA-Public Use
  Company Number: JP-MSD-M2024-05196

PATIENT
  Age: 74 Year
  Sex: Female
  Weight: 50 kg

DRUGS (4)
  1. KEYTRUDA [Suspect]
     Active Substance: PEMBROLIZUMAB
     Indication: Ovarian cancer
     Dosage: 200 MILLIGRAM, Q3W
     Route: 041
     Dates: start: 20221007, end: 20230803
  2. KEYTRUDA [Suspect]
     Active Substance: PEMBROLIZUMAB
     Indication: Cancer with a high tumour mutational burden
  3. MAGNESIUM OXIDE [Concomitant]
     Active Substance: MAGNESIUM OXIDE
     Indication: Constipation
     Dosage: 500 MILLIGRAM, TID
     Route: 048
     Dates: start: 20210906, end: 20231215
  4. GLYCOSAMINOGLYCANS [Concomitant]
     Active Substance: GLYCOSAMINOGLYCANS
     Indication: Dry skin
     Dosage: UNK, PRN
     Dates: start: 20220210, end: 20231215

REACTIONS (10)
  - Death [Fatal]
  - Multiple organ dysfunction syndrome [Fatal]
  - Septic shock [Fatal]
  - Immune-mediated myocarditis [Fatal]
  - Pyelonephritis [Recovered/Resolved]
  - Venous thrombosis limb [Recovering/Resolving]
  - Pulmonary thrombosis [Recovering/Resolving]
  - Malignant neoplasm progression [Unknown]
  - Immune-mediated hypothyroidism [Recovering/Resolving]
  - Renal impairment [Recovering/Resolving]

NARRATIVE: CASE EVENT DATE: 20221012
